FAERS Safety Report 7769349-9 (Version None)
Quarter: 2011Q3

REPORT INFORMATION
  Report Type: 
  Country: None (occurrence: None)
  Receive Date: 20110922
  Receipt Date: 20110920
  Transmission Date: 20111222
  Serious: Yes (Death, Other)
  Sender: FDA-Public Use
  Company Number: AR-ROCHE-796481

PATIENT
  Sex: Female

DRUGS (2)
  1. PACLITAXEL [Concomitant]
     Indication: OVARIAN CANCER
     Route: 042
  2. BEVACIZUMAB [Suspect]
     Indication: OVARIAN CANCER
     Route: 042
     Dates: start: 20110325, end: 20110425

REACTIONS (2)
  - SEPSIS [None]
  - GASTROINTESTINAL PERFORATION [None]
